FAERS Safety Report 14991620 (Version 2)
Quarter: 2019Q1

REPORT INFORMATION
  Report Type: Spontaneous
  Country: IT (occurrence: IT)
  Receive Date: 20180608
  Receipt Date: 20190123
  Transmission Date: 20190417
  Serious: Yes (Life-Threatening)
  Sender: FDA-Public Use
  Company Number: IT-MYLANLABS-2018M1038090

PATIENT
  Age: 59 Year
  Sex: Female

DRUGS (5)
  1. LANOXIN [Interacting]
     Active Substance: DIGOXIN
     Indication: ATRIAL FLUTTER
     Dosage: 125 MICROGRAM, QD(INTERACTING DRUGS)
     Route: 065
     Dates: start: 20180217, end: 20180307
  2. AMIODARONE [Suspect]
     Active Substance: AMIODARONE
     Indication: ATRIAL FLUTTER
     Dosage: 200 MG, QD, (INTERACTING DRUG)
     Dates: start: 20180217, end: 20180307
  3. LASIX [Concomitant]
     Active Substance: FUROSEMIDE
     Indication: HYPERTENSION
     Dosage: 25 MG, QD
  4. LANSOPRAZOLE. [Concomitant]
     Active Substance: LANSOPRAZOLE
     Indication: GASTRITIS
     Dosage: 30 MG, QD
  5. COUMADIN [Concomitant]
     Active Substance: WARFARIN SODIUM
     Indication: ATRIAL FLUTTER
     Dosage: 5 MG, QD

REACTIONS (5)
  - Atrial flutter [Recovered/Resolved]
  - Extrasystoles [Recovered/Resolved]
  - Labelled drug-drug interaction medication error [Unknown]
  - Syncope [Recovered/Resolved]
  - Bradycardia [Recovered/Resolved]

NARRATIVE: CASE EVENT DATE: 20180307
